FAERS Safety Report 7215043-2 (Version None)
Quarter: 2011Q1

REPORT INFORMATION
  Report Type: 
  Country: None (occurrence: None)
  Receive Date: 20110107
  Receipt Date: 20100714
  Transmission Date: 20110831
  Serious: No
  Sender: FDA-Public Use
  Company Number: A0871701A

PATIENT
  Age: 60 Year
  Sex: Male

DRUGS (1)
  1. LOVAZA [Suspect]
     Dosage: 1G UNKNOWN
     Route: 065
     Dates: start: 20100618, end: 20100618

REACTIONS (3)
  - BONE PAIN [None]
  - ABASIA [None]
  - BACK PAIN [None]
